FAERS Safety Report 15310291 (Version 1)
Quarter: 2018Q3

REPORT INFORMATION
  Report Type: Spontaneous
  Country: US (occurrence: US)
  Receive Date: 20180813
  Receipt Date: 20180813
  Transmission Date: 20181010
  Serious: Yes (Hospitalization)
  Sender: FDA-Public Use
  Company Number: None

PATIENT
  Age: 52 Year
  Sex: Female

DRUGS (7)
  1. PALIPERIDONE, PAROXETINE [Concomitant]
  2. ADCIRCA, CARBAMAZEPIN [Concomitant]
  3. NAPROXEN, OPSUMIT [Concomitant]
  4. SILDENAFIL. [Suspect]
     Active Substance: SILDENAFIL
     Indication: PULMONARY ARTERIAL HYPERTENSION
     Route: 048
     Dates: start: 20171110
  5. LITHIUM, METFORMIN [Concomitant]
  6. PROPRANOLOL, SIMVASTATIN [Concomitant]
  7. SPIRONOLACT, UPTRAVI [Concomitant]

REACTIONS (1)
  - Cerebrovascular accident [None]

NARRATIVE: CASE EVENT DATE: 20180808
